FAERS Safety Report 14315062 (Version 1)
Quarter: 2017Q4

REPORT INFORMATION
  Report Type: Spontaneous
  Country: DK (occurrence: DK)
  Receive Date: 20171221
  Receipt Date: 20171221
  Transmission Date: 20180321
  Serious: Yes (Disabling, Other)
  Sender: FDA-Public Use
  Company Number: DK-TEVA-2017-DK-827113

PATIENT
  Age: 74 Year
  Sex: Male

DRUGS (4)
  1. SIMVASTATIN. [Suspect]
     Active Substance: SIMVASTATIN
     Indication: INTRACARDIAC THROMBUS
  2. AMLODIPIN [Concomitant]
     Active Substance: AMLODIPINE BESYLATE
     Indication: BLOOD PRESSURE INCREASED
     Route: 048
     Dates: start: 20121212, end: 20140102
  3. SIMVASTATIN. [Suspect]
     Active Substance: SIMVASTATIN
     Indication: ARTERIOSCLEROSIS
     Dosage: STRENGHT: 40 MG. START DATE NOT KNOWN, BUT FROM BEFORE APRIL 2009.
     Route: 048
     Dates: start: 2009, end: 20140505
  4. METOPROLOL TARTRATE. [Concomitant]
     Active Substance: METOPROLOL TARTRATE
     Indication: HYPERTENSION
     Dosage: START AND END DATE ARE NOT KNOWN, BUT STARTING TAPERING DOWN TAKES PLACE FROM 12 DECEMBER 2012
     Dates: end: 2012

REACTIONS (18)
  - Neuropathy peripheral [Not Recovered/Not Resolved]
  - Urinary incontinence [Unknown]
  - Abnormal faeces [Unknown]
  - Small fibre neuropathy [Not Recovered/Not Resolved]
  - Hypoaesthesia [Unknown]
  - Burning sensation [Not Recovered/Not Resolved]
  - Feeling of body temperature change [Not Recovered/Not Resolved]
  - Oedema [Unknown]
  - Paraesthesia [Not Recovered/Not Resolved]
  - Sensory disturbance [Not Recovered/Not Resolved]
  - Sensory disturbance [Not Recovered/Not Resolved]
  - Paraesthesia [Not Recovered/Not Resolved]
  - Muscle spasms [Not Recovered/Not Resolved]
  - Pain in extremity [Not Recovered/Not Resolved]
  - Musculoskeletal pain [Unknown]
  - Muscle spasms [Unknown]
  - Gait disturbance [Unknown]
  - Groin pain [Unknown]

NARRATIVE: CASE EVENT DATE: 201306
